FAERS Safety Report 13616922 (Version 1)
Quarter: 2017Q2

REPORT INFORMATION
  Report Type: Spontaneous
  Country: US (occurrence: US)
  Receive Date: 20170606
  Receipt Date: 20170606
  Transmission Date: 20170830
  Serious: No
  Sender: FDA-Public Use
  Company Number: US-SA-2016SA130733

PATIENT
  Age: 77 Year
  Sex: Female
  Weight: 95 kg

DRUGS (3)
  1. LANTUS SOLOSTAR [Suspect]
     Active Substance: INSULIN GLARGINE
     Indication: TYPE 2 DIABETES MELLITUS
     Dosage: DOSE:50 UNIT(S)
     Route: 065
     Dates: start: 2016
  2. SOLOSTAR [Concomitant]
     Active Substance: DEVICE
     Dosage: DOSE:50 UNIT(S)
     Route: 065
     Dates: start: 2016
  3. HUMALOG [Concomitant]
     Active Substance: INSULIN LISPRO
     Route: 065

REACTIONS (11)
  - Pharyngeal oedema [Not Recovered/Not Resolved]
  - Back disorder [Unknown]
  - Sensory disturbance [Unknown]
  - Dyspnoea [Not Recovered/Not Resolved]
  - Confusional state [Not Recovered/Not Resolved]
  - Pain [Unknown]
  - Condition aggravated [Unknown]
  - Blood glucose increased [Unknown]
  - Somnolence [Not Recovered/Not Resolved]
  - Back pain [Unknown]
  - Tremor [Unknown]
